FAERS Safety Report 4687969-5 (Version None)
Quarter: 2005Q2

REPORT INFORMATION
  Report Type: 
  Country: None (occurrence: None)
  Receive Date: 20050610
  Receipt Date: 20050323
  Transmission Date: 20051028
  Serious: Yes (Life-Threatening, Hospitalization)
  Sender: FDA-Public Use
  Company Number: PHFR2005GB01331

PATIENT
  Age: 57 Year
  Sex: Female
  Weight: 94 kg

DRUGS (8)
  1. OXYBUTYNIN [Concomitant]
     Indication: URINARY INCONTINENCE
     Dosage: 6MG/DAY
     Route: 048
  2. BECLOMETHASONE DIPROPIONATE [Concomitant]
     Indication: ASTHMA
  3. SALBUTAMOL [Concomitant]
     Indication: ASTHMA
  4. SEREVENT [Concomitant]
     Indication: ASTHMA
  5. CLOZARIL [Suspect]
     Indication: SCHIZOPHRENIA
     Dosage: 400MG/DAY
     Route: 048
     Dates: start: 20010730, end: 20050313
  6. AMITRIPTYLINE [Concomitant]
     Indication: ENURESIS
     Dosage: 20MG/DAY
     Dates: start: 20040101
  7. SYMBICORT TURBUHALER [Concomitant]
     Dosage: 2 PUFFS BID
  8. BRICANYL [Concomitant]
     Dosage: 2 PUFFS QDS

REACTIONS (12)
  - AGITATION [None]
  - ASTHMA [None]
  - CHRONIC OBSTRUCTIVE AIRWAYS DISEASE EXACERBATED [None]
  - CHRONIC OBSTRUCTIVE PULMONARY DISEASE [None]
  - CYANOSIS [None]
  - DEPRESSED LEVEL OF CONSCIOUSNESS [None]
  - DIARRHOEA [None]
  - EMPHYSEMA [None]
  - LOWER RESPIRATORY TRACT INFECTION [None]
  - RESPIRATORY DISORDER [None]
  - RESPIRATORY DISTRESS [None]
  - SOMNOLENCE [None]
